FAERS Safety Report 26042039 (Version 2)
Quarter: 2025Q4

REPORT INFORMATION
  Report Type: Spontaneous
  Country: EU (occurrence: EU)
  Receive Date: 20251113
  Receipt Date: 20251209
  Transmission Date: 20260117
  Serious: Yes (Hospitalization)
  Sender: SANDOZ
  Company Number: EU-AMGEN-NLDSP2025210349

PATIENT
  Age: 8 Year
  Sex: Female

DRUGS (19)
  1. ADALIMUMAB [Suspect]
     Active Substance: ADALIMUMAB
     Indication: Rasmussen encephalitis
     Dosage: 20 MILLIGRAM, Q2WK
     Route: 065
  2. ADALIMUMAB [Suspect]
     Active Substance: ADALIMUMAB
     Dosage: 40 MILLIGRAM, Q2WK
     Route: 065
  3. ADALIMUMAB [Suspect]
     Active Substance: ADALIMUMAB
     Indication: Product used for unknown indication
     Route: 065
  4. ADALIMUMAB [Suspect]
     Active Substance: ADALIMUMAB
     Indication: Product used for unknown indication
     Route: 065
  5. ANAKINRA [Concomitant]
     Active Substance: ANAKINRA
     Indication: Rasmussen encephalitis
     Dosage: 3 MG/KG, QD
     Route: 058
  6. CLOBAZAM [Concomitant]
     Active Substance: CLOBAZAM
     Indication: Rasmussen encephalitis
     Dosage: 20 MILLIGRAM, QD
     Route: 065
  7. LACOSAMIDE [Concomitant]
     Active Substance: LACOSAMIDE
     Indication: Rasmussen encephalitis
     Route: 065
  8. LACOSAMIDE [Concomitant]
     Active Substance: LACOSAMIDE
     Indication: Rasmussen encephalitis
     Route: 065
  9. METHOTREXATE [Concomitant]
     Active Substance: METHOTREXATE
     Indication: Rasmussen encephalitis
     Dosage: 12.5 MILLIGRAM, QWK
     Route: 065
  10. METHYLPREDNISOLONE [Concomitant]
     Active Substance: METHYLPREDNISOLONE
     Indication: Rasmussen encephalitis
     Dosage: 20 MILLIGRAM/KILOGRAM, QD (FOR 4 DAYS)
     Route: 042
  11. OXCARBAZEPINE [Concomitant]
     Active Substance: OXCARBAZEPINE
     Indication: Rasmussen encephalitis
     Dosage: 540 MILLIGRAM, BID
     Route: 065
  12. PHENYTOIN [Concomitant]
     Active Substance: PHENYTOIN
     Indication: Rasmussen encephalitis
     Route: 065
  13. PREDNISOLONE [Concomitant]
     Active Substance: PREDNISOLONE
     Dosage: 1 MILLIGRAM/KILOGRAM, QD (WITH GRADUAL TAPERING)
     Route: 048
  14. PREDNISOLONE [Concomitant]
     Active Substance: PREDNISOLONE
     Indication: Rasmussen encephalitis
     Dosage: 2 MILLIGRAM/KILOGRAM, QD
     Route: 065
  15. PREDNISOLONE [Concomitant]
     Active Substance: PREDNISOLONE
     Dosage: 4 MILLIGRAM, QD
     Route: 065
  16. PREDNISOLONE [Concomitant]
     Active Substance: PREDNISOLONE
     Dosage: TAPERING
     Route: 065
  17. VALPROIC ACID [Concomitant]
     Active Substance: VALPROIC ACID
     Indication: Rasmussen encephalitis
     Route: 065
  18. VIGABATRIN [Concomitant]
     Active Substance: VIGABATRIN
     Indication: Rasmussen encephalitis
     Dosage: 1100 MG, BID
     Route: 065
  19. VIGABATRIN [Concomitant]
     Active Substance: VIGABATRIN
     Dosage: 1100 MILLIGRAM, BID
     Route: 065

REACTIONS (3)
  - Rasmussen encephalitis [Unknown]
  - Drug ineffective for unapproved indication [Unknown]
  - Off label use [Unknown]
